FAERS Safety Report 8560350 (Version 3)
Quarter: 2013Q1

REPORT INFORMATION
  Report Type: Spontaneous
  Country: US (occurrence: US)
  Receive Date: 20120514
  Receipt Date: 20130312
  Transmission Date: 20140127
  Serious: Yes (Hospitalization, Other)
  Sender: FDA-Public Use
  Company Number: US-BRISTOL-MYERS SQUIBB COMPANY-16575748

PATIENT
  Age: 80 Year
  Sex: Female
  Weight: 66.21 kg

DRUGS (1)
  1. ORENCIA [Suspect]
     Indication: RHEUMATOID ARTHRITIS
     Dosage: INTERR 26JAN12, RESUME FEB 12 ?LAST INF:28JAN13
     Route: 042
     Dates: start: 201112

REACTIONS (3)
  - Fall [Recovered/Resolved]
  - Hip fracture [Recovered/Resolved]
  - Tooth disorder [Unknown]
